FAERS Safety Report 9201684 (Version 3)
Quarter: 2014Q2

REPORT INFORMATION
  Report Type: Spontaneous
  Country: US (occurrence: US)
  Receive Date: 20130401
  Receipt Date: 20140506
  Transmission Date: 20141212
  Serious: No
  Sender: FDA-Public Use
  Company Number: US-PFIZER INC-2013101928

PATIENT
  Age: 53 Year
  Sex: Female
  Weight: 106.58 kg

DRUGS (2)
  1. LYRICA [Suspect]
     Indication: NEURALGIA
     Dosage: 225 MG, 2X/DAY
  2. LYRICA [Suspect]
     Dosage: 225 MG, UNK
     Route: 048
     Dates: start: 20110928

REACTIONS (7)
  - Drug withdrawal syndrome [Unknown]
  - Pain [Unknown]
  - Impaired driving ability [Unknown]
  - Tremor [Unknown]
  - Pruritus generalised [Unknown]
  - Hypertension [Unknown]
  - Speech disorder [Unknown]
